FAERS Safety Report 22230194 (Version 1)
Quarter: 2023Q2

REPORT INFORMATION
  Report Type: Spontaneous
  Country: US (occurrence: US)
  Receive Date: 20230419
  Receipt Date: 20230419
  Transmission Date: 20230722
  Serious: No
  Sender: FDA-Public Use
  Company Number: USA--2023-US-000189

PATIENT
  Age: 81 Year
  Sex: Female

DRUGS (3)
  1. LATANOPROST [Suspect]
     Active Substance: LATANOPROST
     Dosage: 1 GGT OU HS
  2. Refresh OYC eye drops [Concomitant]
  3. Boston Solution and Cleanser [Concomitant]

REACTIONS (1)
  - Dark circles under eyes [Unknown]
